FAERS Safety Report 20244140 (Version 1)
Quarter: 2021Q4

REPORT INFORMATION
  Report Type: Spontaneous
  Country: US (occurrence: US)
  Receive Date: 20211229
  Receipt Date: 20211229
  Transmission Date: 20220303
  Serious: No
  Sender: FDA-Public Use
  Company Number: US-COOPERSURGICAL, INC.-US-2021CPS002346

PATIENT
  Age: 27 Year
  Sex: Female

DRUGS (2)
  1. PARAGARD T 380A [Suspect]
     Active Substance: COPPER
     Indication: Contraception
     Dosage: UNK
     Route: 015
     Dates: start: 20110525, end: 20210719
  2. VALACYCLOVIR                       /01269701/ [Concomitant]
     Indication: Herpes virus infection
     Dosage: 500 MG, UNK
     Route: 065

REACTIONS (2)
  - Smear cervix abnormal [Unknown]
  - Device use issue [Unknown]

NARRATIVE: CASE EVENT DATE: 20110525
